FAERS Safety Report 4937109-X (Version None)
Quarter: 2006Q1

REPORT INFORMATION
  Report Type: 
  Country: None (occurrence: None)
  Receive Date: 20060307
  Receipt Date: 20060307
  Transmission Date: 20060701
  Serious: Yes (Life-Threatening, Hospitalization)
  Sender: FDA-Public Use
  Company Number: None

PATIENT
  Age: 68 Year
  Sex: Female
  Weight: 77 kg

DRUGS (9)
  1. DISOPYRAMIDE [Suspect]
     Indication: ATRIAL FIBRILLATION
     Dosage: 150MG  PO  BID
     Route: 048
  2. ASPIRIN [Concomitant]
  3. FOLIC ACID [Concomitant]
  4. ATIVAN [Concomitant]
  5. LABETALOL HCL [Concomitant]
  6. DIOVAN [Concomitant]
  7. VIT B6 [Concomitant]
  8. GABITRIL [Concomitant]
  9. VIT B12 [Concomitant]

REACTIONS (6)
  - BLOOD SODIUM DECREASED [None]
  - DIZZINESS [None]
  - DRY MOUTH [None]
  - FATIGUE [None]
  - ORAL INTAKE REDUCED [None]
  - VIRAL INFECTION [None]
